FAERS Safety Report 5494839-1 (Version None)
Quarter: 2007Q4

REPORT INFORMATION
  Report Type: 
  Country: None (occurrence: None)
  Receive Date: 20071024
  Receipt Date: 20071015
  Transmission Date: 20080405
  Serious: Yes (Hospitalization, Other)
  Sender: FDA-Public Use
  Company Number: US-ELI_LILLY_AND_COMPANY-US200710003628

PATIENT
  Age: 46 Year
  Sex: Female

DRUGS (15)
  1. CYMBALTA [Suspect]
     Indication: PAIN
     Dosage: 60 MG, UNK
     Route: 048
     Dates: start: 20040101
  2. CYMBALTA [Suspect]
     Dosage: 90 MG, UNK
     Route: 048
     Dates: start: 20070101
  3. CYMBALTA [Suspect]
     Dosage: 60 MG, UNK
     Route: 048
     Dates: start: 20070101
  4. HUMALOG [Concomitant]
  5. LANTUS [Concomitant]
  6. POTASSIUM CHLORIDE [Concomitant]
  7. SLOW-MAG [Concomitant]
  8. CHOLESTYRAMINE [Concomitant]
  9. LORTAB [Concomitant]
     Dosage: 500 MG, UNK
  10. XANAX [Concomitant]
     Dosage: 5 MG, 4/D
  11. PAMELOR [Concomitant]
     Dosage: 100 MG, UNK
  12. TOPAMAX [Concomitant]
     Dosage: 50 MG, 2/D
  13. ZANAFLEX [Concomitant]
     Dosage: 4 MG, 2/D
  14. TOPROL-XL [Concomitant]
     Dosage: 100 MG, UNK
  15. ESTRACE [Concomitant]
     Dosage: 2 MG, DAILY (1/D)

REACTIONS (13)
  - ABDOMINAL DISTENSION [None]
  - CERVIX CARCINOMA [None]
  - DIARRHOEA [None]
  - GASTROINTESTINAL DISORDER [None]
  - GASTROINTESTINAL HAEMORRHAGE [None]
  - NECROSIS [None]
  - NEPHROLITHIASIS [None]
  - PAIN IN EXTREMITY [None]
  - STAPHYLOCOCCAL INFECTION [None]
  - THROMBOSIS [None]
  - UTERINE CANCER [None]
  - VOMITING [None]
  - WEIGHT DECREASED [None]
